FAERS Safety Report 25171522 (Version 2)
Quarter: 2025Q2

REPORT INFORMATION
  Report Type: Spontaneous
  Country: US (occurrence: US)
  Receive Date: 20250408
  Receipt Date: 20250524
  Transmission Date: 20250717
  Serious: Yes (Other)
  Sender: AUROBINDO
  Company Number: US-AUROBINDO-AUR-APL-2025-018292

PATIENT
  Age: 15 Year
  Sex: Female

DRUGS (2)
  1. FLECAINIDE [Suspect]
     Active Substance: FLECAINIDE
     Indication: Andersen-Tawil syndrome
     Route: 065
  2. NADOLOL [Suspect]
     Active Substance: NADOLOL
     Indication: Andersen-Tawil syndrome
     Route: 065

REACTIONS (1)
  - Drug ineffective [Unknown]
